FAERS Safety Report 5926481-X (Version None)
Quarter: 2008Q4

REPORT INFORMATION
  Report Type: 
  Country: None (occurrence: None)
  Receive Date: 20081022
  Receipt Date: 20081013
  Transmission Date: 20090506
  Serious: Yes (Other)
  Sender: FDA-Public Use
  Company Number: PHHY2008GB22830

PATIENT
  Age: 9 Year
  Sex: Male
  Weight: 34.4 kg

DRUGS (2)
  1. METHYLPHENIDATE HCL [Suspect]
     Indication: ATTENTION DEFICIT/HYPERACTIVITY DISORDER
     Dosage: 45 MG/DAY
     Route: 048
     Dates: start: 20061201, end: 20080801
  2. STRATTERA [Concomitant]
     Indication: ATTENTION DEFICIT/HYPERACTIVITY DISORDER
     Dosage: 25 MG DIALY

REACTIONS (1)
  - SUICIDAL IDEATION [None]
